FAERS Safety Report 4847673-7 (Version None)
Quarter: 2005Q4

REPORT INFORMATION
  Report Type: 
  Country: None (occurrence: None)
  Receive Date: 20051205
  Receipt Date: 20051123
  Transmission Date: 20060501
  Serious: Yes (Other)
  Sender: FDA-Public Use
  Company Number: 2005-11-1412

PATIENT
  Age: 38 Year
  Sex: Male

DRUGS (4)
  1. PEG-INTRON [Suspect]
     Indication: HEPATITIS C
     Dosage: 150 MG SUBCUTANEOUS
     Route: 058
     Dates: start: 20030919, end: 20031204
  2. REBETOL [Suspect]
     Indication: HEPATITIS C
     Dosage: SEE IMAGE
     Route: 048
     Dates: start: 20030919, end: 20031204
  3. REBETOL [Suspect]
     Indication: HEPATITIS C
     Dosage: SEE IMAGE
     Route: 048
     Dates: start: 20050617
  4. PEGASYS [Suspect]
     Indication: HEPATITIS C
     Dates: start: 20050617

REACTIONS (3)
  - DRUG INTOLERANCE [None]
  - GENERALISED ERYTHEMA [None]
  - PRURITUS GENERALISED [None]
